FAERS Safety Report 4862540-0 (Version None)
Quarter: 2005Q4

REPORT INFORMATION
  Report Type: 
  Country: None (occurrence: None)
  Receive Date: 20051221
  Receipt Date: 20040628
  Transmission Date: 20060501
  Serious: Yes (Death)
  Sender: FDA-Public Use
  Company Number: HK-GLAXOSMITHKLINE-B0337855A

PATIENT
  Age: 56 Year
  Sex: Male

DRUGS (3)
  1. LAMIVUDINE [Suspect]
     Indication: HEPATITIS B
     Dosage: 100MG PER DAY
     Route: 048
  2. CYCLOSPORINE [Concomitant]
     Indication: IMMUNOSUPPRESSION
  3. PREDNISOLONE [Concomitant]
     Indication: IMMUNOSUPPRESSION

REACTIONS (9)
  - ALANINE AMINOTRANSFERASE INCREASED [None]
  - CHOLESTASIS [None]
  - DRUG RESISTANCE [None]
  - HEPATIC FAILURE [None]
  - HEPATIC INFECTION [None]
  - HEPATITIS [None]
  - HEPATITIS B VIRUS [None]
  - LIVER TRANSPLANT REJECTION [None]
  - RENAL FAILURE [None]
